FAERS Safety Report 5501444-7 (Version None)
Quarter: 2007Q4

REPORT INFORMATION
  Report Type: 
  Country: None (occurrence: None)
  Receive Date: 20071030
  Receipt Date: 20071019
  Transmission Date: 20080405
  Serious: Yes (Hospitalization)
  Sender: FDA-Public Use
  Company Number: PHHO2007US17509

PATIENT
  Age: 32 Year
  Sex: Female

DRUGS (1)
  1. MYCOPHENOLIC ACID [Suspect]
     Indication: RENAL TRANSPLANT

REACTIONS (11)
  - ACIDOSIS [None]
  - ANAEMIA [None]
  - BLOOD CREATININE INCREASED [None]
  - CHRONIC ALLOGRAFT NEPHROPATHY [None]
  - DIARRHOEA [None]
  - HYPERKALAEMIA [None]
  - KIDNEY TRANSPLANT REJECTION [None]
  - OESOPHAGEAL FISTULA [None]
  - RENAL FAILURE [None]
  - SUPERIOR VENA CAVAL OCCLUSION [None]
  - UPPER RESPIRATORY TRACT INFECTION [None]
